FAERS Safety Report 4354422-8 (Version None)
Quarter: 2004Q2

REPORT INFORMATION
  Report Type: 
  Country: None (occurrence: None)
  Receive Date: 20040503
  Receipt Date: 20040419
  Transmission Date: 20050107
  Serious: Yes (Hospitalization)
  Sender: FDA-Public Use
  Company Number: K200400593

PATIENT
  Age: 27 Year
  Sex: Male

DRUGS (3)
  1. ALTACE [Suspect]
     Indication: DIABETES MELLITUS INSULIN-DEPENDENT
     Dosage: ORAL
     Route: 048
  2. NEO MERCAZOLE (CARBIMAZOLE) TABLET, 40MG [Suspect]
     Indication: BASEDOW'S DISEASE
     Dosage: 40 MG, QD, ORAL
     Route: 048
     Dates: start: 20020215
  3. INSULIN (INSULIN) SOLUTION [Concomitant]

REACTIONS (6)
  - BIOPSY LYMPH GLAND ABNORMAL [None]
  - COLITIS [None]
  - EOSINOPHILIA [None]
  - GASTRITIS HYPERTROPHIC [None]
  - HYPERPLASIA [None]
  - VASCULITIS [None]
